FAERS Safety Report 5347610-5 (Version None)
Quarter: 2007Q2

REPORT INFORMATION
  Report Type: 
  Country: None (occurrence: None)
  Receive Date: 20070604
  Receipt Date: 20070604
  Transmission Date: 20071010
  Serious: No
  Sender: FDA-Public Use
  Company Number: None

PATIENT
  Age: 56 Year
  Sex: Female
  Weight: 61.2356 kg

DRUGS (2)
  1. ZOLPIDEM [Suspect]
     Indication: INSOMNIA
     Dosage: ONE PER DAY
     Dates: start: 20070510, end: 20070529
  2. THYROID TAB [Suspect]
     Indication: HYPOTHYROIDISM
     Dosage: 3 PER DAY
     Dates: start: 20070524, end: 20070601

REACTIONS (11)
  - ALOPECIA [None]
  - BLOOD PRESSURE DECREASED [None]
  - BODY TEMPERATURE DECREASED [None]
  - DRUG INEFFECTIVE [None]
  - DRY SKIN [None]
  - ECONOMIC PROBLEM [None]
  - NERVOUS SYSTEM DISORDER [None]
  - PAIN [None]
  - POOR QUALITY DRUG ADMINISTERED [None]
  - SKIN DISORDER [None]
  - THERAPEUTIC RESPONSE UNEXPECTED WITH DRUG SUBSTITUTION [None]
